FAERS Safety Report 13359208 (Version 1)
Quarter: 2017Q1

REPORT INFORMATION
  Report Type: Spontaneous
  Country: IT (occurrence: IT)
  Receive Date: 20170322
  Receipt Date: 20170322
  Transmission Date: 20170429
  Serious: Yes (Hospitalization, Other)
  Sender: FDA-Public Use
  Company Number: IT-PFIZER INC-2017117220

PATIENT
  Age: 69 Year
  Sex: Female

DRUGS (9)
  1. CARBOPLATINO HOSPIRA [Suspect]
     Active Substance: CARBOPLATIN
     Dosage: 60 ML, CYCLIC
     Route: 042
     Dates: start: 20161025, end: 20161025
  2. AVASTIN [Concomitant]
     Active Substance: BEVACIZUMAB
     Indication: OVARIAN CANCER
     Dosage: UNK
     Dates: start: 20160912, end: 20160912
  3. ANZATAX [Suspect]
     Active Substance: PACLITAXEL
     Dosage: 280 MG, CYCLIC
     Dates: start: 20161025, end: 20161025
  4. ANZATAX [Suspect]
     Active Substance: PACLITAXEL
     Indication: OVARIAN CANCER
     Dosage: 280 MG, CYCLIC
     Dates: start: 20160822, end: 20160822
  5. ANZATAX [Suspect]
     Active Substance: PACLITAXEL
     Dosage: 280 MG, CYCLIC
     Dates: start: 20160912, end: 20160912
  6. CARBOPLATINO HOSPIRA [Suspect]
     Active Substance: CARBOPLATIN
     Dosage: 60 ML, CYCLIC
     Route: 042
     Dates: start: 20161115, end: 20161115
  7. CARBOPLATINO HOSPIRA [Suspect]
     Active Substance: CARBOPLATIN
     Indication: OVARIAN CANCER
     Dosage: 60 ML, CYCLIC
     Route: 042
     Dates: start: 20160822, end: 20160822
  8. CARBOPLATINO HOSPIRA [Suspect]
     Active Substance: CARBOPLATIN
     Dosage: 60 ML, CYCLIC
     Route: 042
     Dates: start: 20160912, end: 20160912
  9. ANZATAX [Suspect]
     Active Substance: PACLITAXEL
     Dosage: 280 MG, CYCLIC
     Dates: start: 20161115, end: 20161115

REACTIONS (8)
  - Face oedema [Unknown]
  - Dyspnoea [Unknown]
  - Pruritus generalised [Unknown]
  - Erythema [Unknown]
  - Asthenia [Unknown]
  - Toxic skin eruption [Unknown]
  - Rash [Unknown]
  - Dysphagia [Unknown]

NARRATIVE: CASE EVENT DATE: 201610
